FAERS Safety Report 24769833 (Version 1)
Quarter: 2024Q4

REPORT INFORMATION
  Report Type: Spontaneous
  Country: PL (occurrence: PL)
  Receive Date: 20241224
  Receipt Date: 20241224
  Transmission Date: 20250114
  Serious: Yes (Other)
  Sender: UPSHER SMITH LABORATORIES
  Company Number: PL-UPSHER-SMITH LABORATORIES, LLC-20241200271

PATIENT
  Age: 46 Year
  Sex: Female

DRUGS (5)
  1. FLUVOXAMINE MALEATE [Interacting]
     Active Substance: FLUVOXAMINE MALEATE
     Indication: Product used for unknown indication
     Dosage: 100 MG, / DAY
     Route: 065
  2. CANNABIDIOL\HERBALS\TETRAHYDROCANNABINOL UNSPECIFIED [Suspect]
     Active Substance: CANNABIDIOL\HERBALS\TETRAHYDROCANNABINOL UNSPECIFIED
     Indication: Fibromyalgia
     Dosage: UNK
     Route: 065
  3. PREGABALIN [Concomitant]
     Active Substance: PREGABALIN
     Indication: Product used for unknown indication
     Dosage: UNK
     Route: 065
  4. PITAVASTATIN [Concomitant]
     Active Substance: PITAVASTATIN
     Indication: Product used for unknown indication
     Dosage: UNK
     Route: 065
  5. EZETIMIBE [Concomitant]
     Active Substance: EZETIMIBE
     Indication: Product used for unknown indication
     Dosage: UNK
     Route: 065

REACTIONS (6)
  - Hallucination [Unknown]
  - Auditory disorder [Unknown]
  - Tachypnoea [Unknown]
  - Dysarthria [Unknown]
  - Drug interaction [Unknown]
  - Tachycardia [Unknown]
